FAERS Safety Report 21097327 (Version 1)
Quarter: 2022Q3

REPORT INFORMATION
  Report Type: Other
  Country: None (occurrence: TR)
  Receive Date: 20220719
  Receipt Date: 20220719
  Transmission Date: 20221027
  Serious: Yes (Other)
  Sender: FDA-Public Use
  Company Number: TR-Appco Pharma LLC-2130988

PATIENT
  Age: 24 Month
  Sex: Male

DRUGS (1)
  1. LAMIVUDINE [Suspect]
     Active Substance: LAMIVUDINE
     Indication: Chronic hepatitis B
     Route: 065

REACTIONS (2)
  - Therapy non-responder [Unknown]
  - Drug resistance [Unknown]
